FAERS Safety Report 4625113-0 (Version None)
Quarter: 2005Q2

REPORT INFORMATION
  Report Type: 
  Country: None (occurrence: None)
  Receive Date: 20050401
  Receipt Date: 20050301
  Transmission Date: 20051028
  Serious: Yes (Death, Hospitalization)
  Sender: FDA-Public Use
  Company Number: FR-SANOFI-SYNTHELABO-F01200500356

PATIENT
  Sex: Male

DRUGS (5)
  1. OXALIPLATIN [Suspect]
     Indication: COLORECTAL CANCER METASTATIC
     Route: 042
     Dates: start: 20050124, end: 20050124
  2. FLUOROURACIL [Suspect]
     Route: 042
     Dates: start: 20050124, end: 20050124
  3. LEUCOVORIN CALCIUM [Suspect]
     Route: 042
     Dates: start: 20050124, end: 20050124
  4. GLUCOPHAGE [Concomitant]
     Indication: DIABETES MELLITUS
  5. AMARYL [Concomitant]
     Indication: DIABETES MELLITUS

REACTIONS (3)
  - CARDIAC FAILURE [None]
  - GENERAL PHYSICAL HEALTH DETERIORATION [None]
  - LUNG INFECTION [None]
